FAERS Safety Report 16103531 (Version 8)
Quarter: 2019Q4

REPORT INFORMATION
  Report Type: Report from Study
  Country: CA (occurrence: CA)
  Receive Date: 20190322
  Receipt Date: 20191001
  Transmission Date: 20200122
  Serious: Yes (Hospitalization, Other)
  Sender: FDA-Public Use
  Company Number: CA-SA-2019SA072137

PATIENT
  Age: 30 Year
  Sex: Male

DRUGS (14)
  1. DILANTIN [Concomitant]
     Active Substance: PHENYTOIN
     Dosage: 350 MG, QD
     Route: 048
  2. PAXIL [PIROXICAM] [Concomitant]
     Active Substance: PIROXICAM
     Dosage: UNK UNK, QD
     Route: 048
  3. ALEMTUZUMAB [Suspect]
     Active Substance: ALEMTUZUMAB
     Dosage: 12 MG, QD
     Route: 041
     Dates: start: 20190402, end: 20190403
  4. METHYLPREDNISOLONE. [Concomitant]
     Active Substance: METHYLPREDNISOLONE
     Indication: PREMEDICATION
     Dosage: 1 G, UNK
     Route: 042
     Dates: start: 20190313, end: 20190313
  5. LAMOTRIGINE. [Concomitant]
     Active Substance: LAMOTRIGINE
     Dosage: 100 MG, BID
     Route: 048
  6. RANITIDINE. [Concomitant]
     Active Substance: RANITIDINE
     Indication: PREMEDICATION
     Dosage: 150 MG, BID
     Route: 048
     Dates: start: 20190313, end: 20190403
  7. GRAVOL [Concomitant]
     Active Substance: DIMENHYDRINATE
     Indication: PREMEDICATION
     Dosage: 50 MG
     Route: 048
     Dates: start: 20190402, end: 20190403
  8. ALEMTUZUMAB [Suspect]
     Active Substance: ALEMTUZUMAB
     Indication: RELAPSING-REMITTING MULTIPLE SCLEROSIS
     Dosage: 12 MG, QD
     Route: 041
     Dates: start: 20190313, end: 20190313
  9. BENADRYL [Concomitant]
     Active Substance: DIPHENHYDRAMINE HYDROCHLORIDE
     Indication: PREMEDICATION
     Dosage: 50 MG, UNK
     Route: 048
     Dates: start: 20190313, end: 20190403
  10. CANNIMED OIL [Concomitant]
     Dosage: 0.3 ML, PRN
     Route: 048
  11. METHYLPREDNISOLONE. [Concomitant]
     Active Substance: METHYLPREDNISOLONE
     Dosage: 1 G, UNK
     Route: 042
     Dates: start: 20190402, end: 20190403
  12. TYLENOL [Concomitant]
     Active Substance: ACETAMINOPHEN
     Indication: PREMEDICATION
     Dosage: 1000 MG, UNK
     Route: 048
     Dates: start: 20190313, end: 20190403
  13. ACYCLOVIR [ACICLOVIR] [Concomitant]
     Active Substance: ACYCLOVIR
     Indication: PREMEDICATION
     Dosage: 200 MG, UNK
     Route: 048
     Dates: start: 20190313
  14. SEROQUEL [Concomitant]
     Active Substance: QUETIAPINE FUMARATE
     Dosage: UNK
     Route: 048

REACTIONS (11)
  - Musculoskeletal disorder [Recovered/Resolved]
  - Lymphocyte count decreased [Not Recovered/Not Resolved]
  - Facial paralysis [Recovered/Resolved]
  - Activated partial thromboplastin time prolonged [Not Recovered/Not Resolved]
  - Vomiting [Recovered/Resolved]
  - Hypotension [Recovered/Resolved]
  - Dysarthria [Recovered/Resolved]
  - Fatigue [Recovered/Resolved]
  - Dyskinesia [Recovered/Resolved]
  - Asthenia [Recovered/Resolved]
  - Muscular weakness [Recovered/Resolved]

NARRATIVE: CASE EVENT DATE: 20190313
